FAERS Safety Report 23680881 (Version 2)
Quarter: 2024Q3

REPORT INFORMATION
  Report Type: Spontaneous
  Country: US (occurrence: US)
  Receive Date: 20240328
  Receipt Date: 20240806
  Transmission Date: 20241016
  Serious: Yes (Hospitalization, Disabling)
  Sender: NOVARTIS
  Company Number: US-002147023-NVSC2024US066033

PATIENT
  Sex: Female

DRUGS (2)
  1. PROMACTA [Suspect]
     Active Substance: ELTROMBOPAG OLAMINE
     Indication: Thrombocytopenia
     Dosage: 50 MG, QD
     Route: 048
     Dates: start: 202311
  2. PROMACTA [Suspect]
     Active Substance: ELTROMBOPAG OLAMINE
     Dosage: 25 MG, QD
     Route: 048
     Dates: start: 202311

REACTIONS (1)
  - Arthralgia [Not Recovered/Not Resolved]
